FAERS Safety Report 9075921 (Version 3)
Quarter: 2014Q3

REPORT INFORMATION
  Report Type: Spontaneous
  Country: US (occurrence: US)
  Receive Date: 20130129
  Receipt Date: 20140814
  Transmission Date: 20150326
  Serious: Yes (Hospitalization, Other)
  Sender: FDA-Public Use
  Company Number: US-009507513-1301USA013272

PATIENT
  Sex: Female
  Weight: 111.11 kg

DRUGS (1)
  1. NUVARING [Suspect]
     Active Substance: ETHINYL ESTRADIOL\ETONOGESTREL
     Indication: CONTRACEPTION
     Dosage: 3 WEEKS IN/1 WEEK OUT
     Route: 067
     Dates: start: 20090827, end: 2010

REACTIONS (20)
  - Hypokalaemia [Unknown]
  - Hypoaesthesia [Not Recovered/Not Resolved]
  - Cyst [Unknown]
  - Vena cava filter insertion [Unknown]
  - Lymphoedema [Unknown]
  - Urinary tract infection [Unknown]
  - Dyspnoea [Unknown]
  - Vulvovaginal mycotic infection [Unknown]
  - Effusion [Unknown]
  - Atrial fibrillation [Unknown]
  - Thrombectomy [Unknown]
  - Syncope [Unknown]
  - Supraventricular tachycardia [Unknown]
  - Pulmonary embolism [Not Recovered/Not Resolved]
  - Headache [Recovering/Resolving]
  - Oligomenorrhoea [Unknown]
  - Deep vein thrombosis [Not Recovered/Not Resolved]
  - Prothrombin time shortened [Unknown]
  - Hyperkalaemia [Unknown]
  - Anxiety [Unknown]

NARRATIVE: CASE EVENT DATE: 20100104
